FAERS Safety Report 10557814 (Version 1)
Quarter: 2014Q4

REPORT INFORMATION
  Report Type: Spontaneous
  Country: US (occurrence: None)
  Receive Date: 20141030
  Receipt Date: 20141030
  Transmission Date: 20150529
  Serious: Yes (Life-Threatening, Hospitalization)
  Sender: FDA-Public Use
  Company Number: None

PATIENT
  Age: 40 Year
  Sex: Female
  Weight: 76 kg

DRUGS (12)
  1. ENOXAPARIN [Concomitant]
     Active Substance: ENOXAPARIN
  2. BENZOCAINE. [Suspect]
     Active Substance: BENZOCAINE
     Indication: ECHOCARDIOGRAM
     Dosage: ESOPHAGEAL SPRAY
     Dates: start: 20141002, end: 20141002
  3. DEPAKOTE [Concomitant]
     Active Substance: DIVALPROEX SODIUM
  4. TRAZODONE [Concomitant]
     Active Substance: TRAZODONE HYDROCHLORIDE
  5. VANCOMYCIN [Concomitant]
     Active Substance: VANCOMYCIN
  6. ACETAMINOPHEN. [Concomitant]
     Active Substance: ACETAMINOPHEN
  7. ALBUTEROL. [Concomitant]
     Active Substance: ALBUTEROL
  8. ZOFRAN [Concomitant]
     Active Substance: ONDANSETRON HYDROCHLORIDE
  9. GABAPENTIN. [Concomitant]
     Active Substance: GABAPENTIN
  10. HYDROXYZINE [Concomitant]
     Active Substance: HYDROXYZINE\HYDROXYZINE HYDROCHLORIDE
  11. OXYCODONE [Concomitant]
     Active Substance: OXYCODONE
  12. POTASSIUM [Concomitant]
     Active Substance: POTASSIUM

REACTIONS (4)
  - Methaemoglobinaemia [None]
  - Cyanosis [None]
  - Lip discolouration [None]
  - Oxygen saturation decreased [None]

NARRATIVE: CASE EVENT DATE: 20141002
